FAERS Safety Report 25118842 (Version 1)
Quarter: 2025Q1

REPORT INFORMATION
  Report Type: Spontaneous
  Country: US (occurrence: US)
  Receive Date: 20250325
  Receipt Date: 20250325
  Transmission Date: 20250409
  Serious: No
  Sender: NOBELPHARMA AMERICA, LLC
  Company Number: US-Nobelpharma America, LLC-NPA-2025-00421

PATIENT
  Age: 27 Year
  Sex: Male

DRUGS (7)
  1. HYFTOR [Suspect]
     Active Substance: SIROLIMUS
     Indication: Benign neoplasm of skin
     Route: 061
     Dates: end: 20250304
  2. CARBAMAZEPINE [Concomitant]
     Active Substance: CARBAMAZEPINE
  3. EVEROLIMUS [Concomitant]
     Active Substance: EVEROLIMUS
  4. LISINOPRIL [Concomitant]
     Active Substance: LISINOPRIL
  5. PANTOPRAZOLE [Concomitant]
     Active Substance: PANTOPRAZOLE
  6. VITAMIN C [Concomitant]
     Active Substance: ASCORBIC ACID
  7. VITAMIN D3 [Concomitant]
     Active Substance: CHOLECALCIFEROL

REACTIONS (2)
  - Cough [Unknown]
  - Off label use [Unknown]

NARRATIVE: CASE EVENT DATE: 20250101
